FAERS Safety Report 4838093-X (Version None)
Quarter: 2005Q4

REPORT INFORMATION
  Report Type: 
  Country: None (occurrence: None)
  Receive Date: 20051128
  Receipt Date: 20051114
  Transmission Date: 20060501
  Serious: Yes (Other)
  Sender: FDA-Public Use
  Company Number: 2005AC01827

PATIENT
  Age: 24 Year
  Sex: Male

DRUGS (2)
  1. LIDOCAINE [Suspect]
     Indication: LOCAL ANAESTHESIA
     Dosage: DOSING AMOUNT INCLUDED EPINEPHRINE
     Route: 053
  2. BUPIVACAINE [Suspect]
     Indication: LOCAL ANAESTHESIA
     Route: 053

REACTIONS (3)
  - HYPHAEMA [None]
  - INTRAOCULAR PRESSURE INCREASED [None]
  - VITREOUS DETACHMENT [None]
